FAERS Safety Report 8186986-0 (Version None)
Quarter: 2012Q1

REPORT INFORMATION
  Report Type: 
  Country: None (occurrence: None)
  Receive Date: 20120306
  Receipt Date: 20120221
  Transmission Date: 20120608
  Serious: Yes (Other)
  Sender: FDA-Public Use
  Company Number: FR-SANOFI-AVENTIS-2012SA011186

PATIENT
  Age: 63 Year
  Sex: Male

DRUGS (4)
  1. OFLOXACIN [Suspect]
     Indication: ENDOCARDITIS
     Route: 065
     Dates: start: 20111101, end: 20111122
  2. AUGMENTIN '125' [Suspect]
     Indication: ENDOCARDITIS
     Route: 065
     Dates: start: 20111101, end: 20111122
  3. DAPTOMYCIN [Suspect]
     Indication: ENDOCARDITIS
     Route: 065
     Dates: start: 20111122, end: 20120108
  4. RIFADIN [Suspect]
     Indication: ENDOCARDITIS
     Route: 065
     Dates: start: 20111122, end: 20111209

REACTIONS (2)
  - ORAL FUNGAL INFECTION [None]
  - FUNGAL SKIN INFECTION [None]
